FAERS Safety Report 9743154 (Version 2)
Quarter: 2015Q3

REPORT INFORMATION
  Report Type: Spontaneous
  Country: US (occurrence: US)
  Receive Date: 20131210
  Receipt Date: 20150804
  Transmission Date: 20151125
  Serious: No
  Sender: FDA-Public Use
  Company Number: US-GILEAD-2009-0024375

PATIENT
  Age: 45 Year
  Sex: Female
  Weight: 77.11 kg

DRUGS (14)
  1. COUMADIN [Concomitant]
     Active Substance: WARFARIN SODIUM
  2. PHENERGAN [Concomitant]
     Active Substance: PROMETHAZINE HYDROCHLORIDE
  3. MORPHINE [Concomitant]
     Active Substance: MORPHINE
  4. ASPIRIN. [Concomitant]
     Active Substance: ASPIRIN
  5. LYRICA [Concomitant]
     Active Substance: PREGABALIN
  6. FENTANYL. [Concomitant]
     Active Substance: FENTANYL
  7. LETAIRIS [Suspect]
     Active Substance: AMBRISENTAN
     Indication: PULMONARY ARTERIAL HYPERTENSION
     Route: 048
     Dates: start: 20090906
  8. TADALAFIL [Concomitant]
     Active Substance: TADALAFIL
  9. LASIX [Concomitant]
     Active Substance: FUROSEMIDE
  10. DEPAKOTE [Concomitant]
     Active Substance: DIVALPROEX SODIUM
  11. VALIUM [Concomitant]
     Active Substance: DIAZEPAM
  12. HYDROCODONE-APAP [Concomitant]
     Active Substance: ACETAMINOPHEN\HYDROCODONE
  13. PROTONIX [Concomitant]
     Active Substance: PANTOPRAZOLE SODIUM
  14. TRAZODONE [Concomitant]
     Active Substance: TRAZODONE HYDROCHLORIDE

REACTIONS (2)
  - Peripheral swelling [Unknown]
  - Headache [Unknown]
